FAERS Safety Report 6624019-5 (Version None)
Quarter: 2010Q1

REPORT INFORMATION
  Report Type: 
  Country: None (occurrence: None)
  Receive Date: 20100310
  Receipt Date: 20100301
  Transmission Date: 20100710
  Serious: Yes (Hospitalization, Other)
  Sender: FDA-Public Use
  Company Number: PHHY2009MX57583

PATIENT
  Age: 76 Year
  Sex: Female

DRUGS (3)
  1. CO-DIOVAN [Suspect]
     Indication: HYPERTENSION
     Dosage: 1 TABLET (160/25MG) PER DAY
     Route: 048
     Dates: start: 20071201
  2. TENORMIN [Concomitant]
     Dosage: 1 TABLET PER DAY
     Route: 048
     Dates: start: 19900101
  3. ARAVA [Concomitant]
     Dosage: UNK
     Dates: start: 20020101

REACTIONS (1)
  - GLAUCOMA SURGERY [None]
